FAERS Safety Report 20059354 (Version 1)
Quarter: 2021Q4

REPORT INFORMATION
  Report Type: Spontaneous
  Country: BE (occurrence: BE)
  Receive Date: 20211111
  Receipt Date: 20211111
  Transmission Date: 20220303
  Serious: Yes (Life-Threatening, Hospitalization, Other)
  Sender: FDA-Public Use
  Company Number: BE-FERRINGPH-2021FE05106

PATIENT
  Age: 36 Year
  Sex: Female

DRUGS (4)
  1. MIDAZOLAM [Suspect]
     Active Substance: MIDAZOLAM
     Indication: Product used for unknown indication
     Dosage: 2 MILLIGRAM (2 MG)
     Route: 065
  2. EPHEDRINE [Suspect]
     Active Substance: EPHEDRINE
     Indication: Product used for unknown indication
     Dosage: 9 MILLIGRAM (9 MG)
     Route: 065
  3. ATROPINE [Suspect]
     Active Substance: ATROPINE
     Indication: Product used for unknown indication
     Dosage: 0.5 MILLIGRAM (0.5 MG)
     Route: 065
  4. CARBETOCIN [Suspect]
     Active Substance: CARBETOCIN
     Indication: Postpartum haemorrhage
     Dosage: 30 MICROGRAM (30 UG)
     Route: 042

REACTIONS (6)
  - Acute myocardial infarction [Recovered/Resolved]
  - Feeling abnormal [Recovered/Resolved]
  - Chest pain [Recovered/Resolved]
  - Bradycardia [Recovered/Resolved]
  - Headache [Recovered/Resolved]
  - Hypotension [Recovered/Resolved]
